FAERS Safety Report 6226712-5 (Version None)
Quarter: 2009Q2

REPORT INFORMATION
  Report Type: 
  Country: None (occurrence: None)
  Receive Date: 20090612
  Receipt Date: 20090604
  Transmission Date: 20091009
  Serious: Yes (Hospitalization)
  Sender: FDA-Public Use
  Company Number: BR-ROCHE-632088

PATIENT
  Sex: Male
  Weight: 70 kg

DRUGS (2)
  1. ROACUTAN [Suspect]
     Indication: ACNE
     Route: 065
     Dates: start: 20090209, end: 20090508
  2. ROACUTAN [Suspect]
     Dosage: START DATE REPORTED AS 2009
     Route: 065

REACTIONS (1)
  - HYPERTENSIVE CRISIS [None]
